FAERS Safety Report 13859867 (Version 1)
Quarter: 2017Q3

REPORT INFORMATION
  Report Type: Spontaneous
  Country: FR (occurrence: FR)
  Receive Date: 20170811
  Receipt Date: 20170811
  Transmission Date: 20171127
  Serious: Yes (Hospitalization)
  Sender: FDA-Public Use
  Company Number: FR-BAYER-2017-147105

PATIENT
  Age: 64 Year
  Sex: Female

DRUGS (6)
  1. CIFLOX 500 MG [Suspect]
     Active Substance: CIPROFLOXACIN
     Dosage: UNK
     Route: 048
     Dates: end: 20170429
  2. LEVOTHYROX [Concomitant]
     Active Substance: LEVOTHYROXINE
  3. ATACAND [Concomitant]
     Active Substance: CANDESARTAN CILEXETIL
  4. SINTROM [Suspect]
     Active Substance: ACENOCOUMAROL
     Indication: PHLEBITIS
     Dosage: 2 MG, QD
     Route: 048
     Dates: start: 20170422, end: 20170429
  5. MODOPAR [Concomitant]
     Active Substance: BENSERAZIDE HYDROCHLORIDE\LEVODOPA
  6. SPECIAFOLDINE [Concomitant]
     Active Substance: FOLIC ACID

REACTIONS (3)
  - International normalised ratio increased [Recovered/Resolved]
  - Shock haemorrhagic [Recovered/Resolved]
  - Haematoma [Recovered/Resolved]

NARRATIVE: CASE EVENT DATE: 20170429
